FAERS Safety Report 9164613 (Version 1)
Quarter: 2013Q1

REPORT INFORMATION
  Report Type: Spontaneous
  Country: DE (occurrence: DE)
  Receive Date: 20130315
  Receipt Date: 20130315
  Transmission Date: 20140127
  Serious: Yes (Death, Hospitalization, Other)
  Sender: FDA-Public Use
  Company Number: DE-MERCK-1303DEU006013

PATIENT
  Age: 61 Year
  Sex: Male
  Weight: 56 kg

DRUGS (6)
  1. REBETOL [Suspect]
     Indication: HEPATITIS C
     Dosage: 1000 MG
     Route: 048
     Dates: start: 20121001, end: 20121112
  2. REBETOL [Suspect]
     Dosage: 600 MG
     Route: 048
     Dates: start: 20121113
  3. TELAPREVIR [Suspect]
     Indication: HEPATITIS C
     Dosage: 6 TABLETS
     Route: 048
     Dates: start: 20121001
  4. PEGASYS [Suspect]
     Indication: HEPATITIS C
     Dosage: 1 FPEN, QW
     Route: 058
     Dates: start: 20121001
  5. MORPHINE SULFATE [Concomitant]
     Indication: OSTEOPOROSIS
     Dosage: 2 TABLETS
     Route: 048
     Dates: start: 20120801
  6. DIAZEPAM [Concomitant]
     Dosage: 5 MG
     Route: 048

REACTIONS (13)
  - Multi-organ failure [Fatal]
  - General physical health deterioration [Unknown]
  - Confusional state [Unknown]
  - Agranulocytosis [Unknown]
  - Septic shock [Unknown]
  - Renal failure acute [Unknown]
  - Disseminated intravascular coagulation [Unknown]
  - Leukopenia [Unknown]
  - Lactic acidosis [Unknown]
  - Anuria [Unknown]
  - Bronchitis [Unknown]
  - Pneumonia [Unknown]
  - Anaemia [Unknown]
